FAERS Safety Report 12798780 (Version 4)
Quarter: 2017Q3

REPORT INFORMATION
  Report Type: Spontaneous
  Country: BR (occurrence: BR)
  Receive Date: 20160930
  Receipt Date: 20170802
  Transmission Date: 20171127
  Serious: Yes (Other)
  Sender: FDA-Public Use
  Company Number: PHHY2016BR130366

PATIENT
  Sex: Female
  Weight: 50 kg

DRUGS (11)
  1. LEVOFLOXACIN. [Suspect]
     Active Substance: LEVOFLOXACIN
     Indication: SINUSITIS
     Route: 065
     Dates: start: 201607
  2. DESOGESTREL SANDOZ [Interacting]
     Active Substance: DESOGESTREL
     Indication: ORAL CONTRACEPTION
     Dosage: 75 UG, QD
     Route: 048
     Dates: start: 201604
  3. CYCLOSPORIN [Concomitant]
     Active Substance: CYCLOSPORINE
     Indication: PRODUCT USED FOR UNKNOWN INDICATION
     Route: 065
  4. RIVOTRIL [Concomitant]
     Active Substance: CLONAZEPAM
     Indication: ANXIETY
     Route: 065
  5. PREDSIM [Concomitant]
     Active Substance: PREDNISOLONE
     Indication: PRODUCT USED FOR UNKNOWN INDICATION
     Route: 065
  6. SEKI [Concomitant]
     Active Substance: CLOPERASTINE
     Indication: PRODUCT USED FOR UNKNOWN INDICATION
     Route: 065
  7. QLAIRA [Concomitant]
     Active Substance: DIENOGEST\ESTRADIOL VALERATE
     Indication: PRODUCT USED FOR UNKNOWN INDICATION
     Route: 065
     Dates: start: 201602
  8. DIOSMIN [Concomitant]
     Active Substance: DIOSMIN
     Indication: ANXIETY
     Route: 065
  9. FOLIC ACID. [Concomitant]
     Active Substance: FOLIC ACID
     Indication: PRODUCT USED FOR UNKNOWN INDICATION
     Dosage: 1 DF, QD
     Route: 048
     Dates: start: 20160912
  10. UTROGESTAN [Concomitant]
     Active Substance: PROGESTERONE
     Indication: FOETAL DEATH
     Dosage: 1 DF, QD
     Route: 067
     Dates: start: 20160912
  11. STILNOX [Concomitant]
     Active Substance: ZOLPIDEM TARTRATE
     Indication: ORAL CONTRACEPTION
     Route: 065

REACTIONS (4)
  - Pregnancy [Not Recovered/Not Resolved]
  - Maternal exposure during pregnancy [Unknown]
  - Drug interaction [Unknown]
  - Drug ineffective [Not Recovered/Not Resolved]
